FAERS Safety Report 18419870 (Version 1)
Quarter: 2020Q4

REPORT INFORMATION
  Report Type: Spontaneous
  Country: US (occurrence: US)
  Receive Date: 20201023
  Receipt Date: 20201023
  Transmission Date: 20210114
  Serious: Yes (Other)
  Sender: FDA-Public Use
  Company Number: None

PATIENT
  Age: 61 Year
  Sex: Female

DRUGS (13)
  1. METHOCARBAMOL. [Concomitant]
     Active Substance: METHOCARBAMOL
  2. LORAZEPAM. [Concomitant]
     Active Substance: LORAZEPAM
  3. TUMERIC [Concomitant]
     Active Substance: HERBALS\TURMERIC
  4. CALCIUM [Concomitant]
     Active Substance: CALCIUM
  5. LOSARTAN/HCTZ [Concomitant]
     Active Substance: HYDROCHLOROTHIAZIDE\LOSARTAN
  6. PRALUENT [Suspect]
     Active Substance: ALIROCUMAB
     Indication: HYPERCHOLESTEROLAEMIA
     Dosage: ?          QUANTITY:75 MG/ML - MILLLIGRAMS PER MILLILITRES;OTHER FREQUENCY:EVERY2WEEKS;?
     Route: 058
     Dates: start: 20190430
  7. GABAPENTIN. [Concomitant]
     Active Substance: GABAPENTIN
  8. VIT D [Concomitant]
     Active Substance: VITAMIN D NOS
  9. NORCO [Concomitant]
     Active Substance: ACETAMINOPHEN\HYDROCODONE BITARTRATE
  10. BLACK COHOSH [Concomitant]
     Active Substance: BLACK COHOSH
  11. ZYRTEC [Concomitant]
     Active Substance: CETIRIZINE HYDROCHLORIDE
  12. OMEPRAZOLE. [Concomitant]
     Active Substance: OMEPRAZOLE
  13. CRESTOR [Concomitant]
     Active Substance: ROSUVASTATIN CALCIUM

REACTIONS (2)
  - Injection related reaction [None]
  - Rhinorrhoea [None]

NARRATIVE: CASE EVENT DATE: 20190430
